FAERS Safety Report 9472646 (Version 1)
Quarter: 2013Q3

REPORT INFORMATION
  Report Type: Spontaneous
  Country: US (occurrence: None)
  Receive Date: 20130821
  Receipt Date: 20130821
  Transmission Date: 20140515
  Serious: Yes (Hospitalization)
  Sender: FDA-Public Use
  Company Number: None

PATIENT
  Age: 89 Year
  Sex: Male

DRUGS (1)
  1. SULFAMETHOXAZOLE/TRIMETHOPRIM [Suspect]
     Indication: INFECTION
     Route: 048
     Dates: start: 20130718, end: 20130724

REACTIONS (6)
  - Fatigue [None]
  - Renal failure acute [None]
  - Hyperkalaemia [None]
  - Dyspnoea exertional [None]
  - Electrocardiogram T wave peaked [None]
  - International normalised ratio increased [None]
